FAERS Safety Report 8413883-5 (Version None)
Quarter: 2012Q2

REPORT INFORMATION
  Report Type: 
  Country: None (occurrence: None)
  Receive Date: 20120605
  Receipt Date: 20120601
  Transmission Date: 20120825
  Serious: Yes (Other)
  Sender: FDA-Public Use
  Company Number: DE-BAYER-2012-055170

PATIENT
  Age: 27 Year
  Sex: Female

DRUGS (1)
  1. BETASERON [Suspect]
     Indication: OPTIC NEURITIS
     Dosage: UNK
     Dates: start: 20040101, end: 20080801

REACTIONS (4)
  - PARAPARESIS [None]
  - HEADACHE [None]
  - NEUTRALISING ANTIBODIES POSITIVE [None]
  - MYALGIA [None]
